FAERS Safety Report 19924919 (Version 4)
Quarter: 2021Q4

REPORT INFORMATION
  Report Type: Report from Study
  Country: GB (occurrence: GB)
  Receive Date: 20211006
  Receipt Date: 20211110
  Transmission Date: 20220303
  Serious: Yes (Death, Life-Threatening, Hospitalization)
  Sender: FDA-Public Use
  Company Number: GB-PFIZER INC-202101293867

PATIENT
  Age: 72 Year
  Sex: Male
  Weight: 70.4 kg

DRUGS (5)
  1. PALBOCICLIB [Suspect]
     Active Substance: PALBOCICLIB
     Indication: Non-small cell lung cancer
     Dosage: 125 MG, 1X/DAY
     Route: 048
     Dates: start: 20210310, end: 20210921
  2. INSULIN GLARGINE [Concomitant]
     Active Substance: INSULIN GLARGINE
     Indication: Type 2 diabetes mellitus
     Dosage: 100, 1X/DAY
     Route: 058
     Dates: start: 20110615
  3. NOVORAPID [Concomitant]
     Active Substance: INSULIN ASPART
     Indication: Type 2 diabetes mellitus
     Dosage: 100, 3X/DAY
     Route: 058
     Dates: start: 20110615
  4. LEVOTHYROXINE [Concomitant]
     Active Substance: LEVOTHYROXINE
     Indication: Hypothyroidism
     Dosage: 150 UG, 1X/DAY
     Route: 048
     Dates: start: 20190904
  5. ATORVASTATIN [Concomitant]
     Active Substance: ATORVASTATIN
     Indication: Lipids increased
     Dosage: 20 MG
     Route: 048
     Dates: start: 20160615

REACTIONS (1)
  - Respiratory failure [Fatal]

NARRATIVE: CASE EVENT DATE: 20210926
